FAERS Safety Report 4903495-X (Version None)
Quarter: 2006Q1

REPORT INFORMATION
  Report Type: 
  Country: None (occurrence: None)
  Receive Date: 20060206
  Receipt Date: 20060206
  Transmission Date: 20060701
  Serious: Yes (Other)
  Sender: FDA-Public Use
  Company Number: None

PATIENT
  Sex: Male

DRUGS (3)
  1. GAD [Suspect]
     Indication: MASS
     Dosage: 18 CC
  2. LOTREL [Concomitant]
  3. CIALEX [Concomitant]

REACTIONS (3)
  - CHEST PAIN [None]
  - HEART RATE ABNORMAL [None]
  - VOMITING [None]
